FAERS Safety Report 26046302 (Version 1)
Quarter: 2025Q4

REPORT INFORMATION
  Report Type: Spontaneous
  Country: US (occurrence: US)
  Receive Date: 20251114
  Receipt Date: 20251114
  Transmission Date: 20260117
  Serious: Yes (Hospitalization, Other)
  Sender: MERCK SHARP & DOHME LLC
  Company Number: US-009507513-2347290

PATIENT
  Sex: Male

DRUGS (1)
  1. KEYTRUDA [Suspect]
     Active Substance: PEMBROLIZUMAB
     Indication: Lung neoplasm malignant
     Dates: end: 202504

REACTIONS (8)
  - Cerebrovascular accident [Unknown]
  - Heart rate increased [Unknown]
  - Immune system disorder [Unknown]
  - Cardiac disorder [Unknown]
  - Lung disorder [Unknown]
  - Nervous system disorder [Unknown]
  - Pulmonary embolism [Unknown]
  - Hypometabolism [Unknown]

NARRATIVE: CASE EVENT DATE: 20250101
